FAERS Safety Report 7458765-0 (Version None)
Quarter: 2011Q2

REPORT INFORMATION
  Report Type: 
  Country: None (occurrence: None)
  Receive Date: 20110504
  Receipt Date: 20110428
  Transmission Date: 20111010
  Serious: Yes (Death)
  Sender: FDA-Public Use
  Company Number: TR-PFIZER INC-2011087670

PATIENT
  Age: 44 Year
  Sex: Male

DRUGS (4)
  1. IMIPENEM [Suspect]
     Dosage: 500 MG, 4X/DAY
     Route: 042
     Dates: start: 20100707, end: 20100803
  2. SULPERAZON [Suspect]
     Dosage: 2 G, 3X/DAY
     Route: 042
     Dates: start: 20100703, end: 20100707
  3. TARGOCID [Suspect]
     Dosage: 400 UNK, 1X/DAY
     Route: 042
     Dates: start: 20100706, end: 20100803
  4. CANCIDAS [Suspect]
     Dosage: 50 MG, 1X/DAY
     Route: 042
     Dates: start: 20100719, end: 20100803

REACTIONS (1)
  - DEATH [None]
